FAERS Safety Report 8300729-9 (Version None)
Quarter: 2012Q2

REPORT INFORMATION
  Report Type: 
  Country: None (occurrence: None)
  Receive Date: 20120420
  Receipt Date: 20120416
  Transmission Date: 20120825
  Serious: Yes (Death, Hospitalization)
  Sender: FDA-Public Use
  Company Number: PHHY2012MX032596

PATIENT
  Sex: Female

DRUGS (1)
  1. ZOLEDRONOC ACID [Suspect]
     Indication: OSTEOPOROSIS
     Dosage: 5MG/100 ML PER YEAR
     Route: 042
     Dates: start: 20110816

REACTIONS (5)
  - LUNG INFECTION [None]
  - ABDOMINAL INFECTION [None]
  - HEPATIC INFECTION [None]
  - DIARRHOEA [None]
  - PYREXIA [None]
